FAERS Safety Report 17222157 (Version 1)
Quarter: 2020Q1

REPORT INFORMATION
  Report Type: Spontaneous
  Country: AU (occurrence: AU)
  Receive Date: 20200101
  Receipt Date: 20200101
  Transmission Date: 20200409
  Serious: Yes (Death, Other)
  Sender: FDA-Public Use
  Company Number: NVSC2019AU083482

PATIENT
  Age: 72 Year
  Sex: Female

DRUGS (2)
  1. FEMARA [Suspect]
     Active Substance: LETROZOLE
     Indication: BREAST CANCER METASTATIC
     Dosage: UNK
     Route: 065
     Dates: start: 20190820
  2. RIBOCICLIB. [Suspect]
     Active Substance: RIBOCICLIB
     Indication: BREAST CANCER METASTATIC
     Dosage: UNK
     Route: 065
     Dates: start: 20190820

REACTIONS (7)
  - Lung infiltration [Unknown]
  - Dependence on respirator [Unknown]
  - General physical health deterioration [Unknown]
  - Death [Fatal]
  - Respiratory failure [Unknown]
  - Dyspnoea [Unknown]
  - Shock [Unknown]
